FAERS Safety Report 12922030 (Version 1)
Quarter: 2016Q4

REPORT INFORMATION
  Report Type: Spontaneous
  Country: AU (occurrence: AU)
  Receive Date: 20161108
  Receipt Date: 20161108
  Transmission Date: 20170207
  Serious: Yes (Hospitalization, Other)
  Sender: FDA-Public Use
  Company Number: AU-INCYTE CORPORATION-2016IN007068

PATIENT
  Age: 50 Year
  Sex: Female

DRUGS (3)
  1. CYTARABINE. [Concomitant]
     Active Substance: CYTARABINE
     Indication: PRODUCT USED FOR UNKNOWN INDICATION
     Dosage: 100 MG/M2, QD FOR 1-7 DAYS
     Route: 065
  2. IDARUBICIN [Concomitant]
     Active Substance: IDARUBICIN
     Indication: PRODUCT USED FOR UNKNOWN INDICATION
     Dosage: 12 MG/M2, QD FOR 1-3 DAYS
     Route: 065
  3. JAKAVI [Suspect]
     Active Substance: RUXOLITINIB
     Indication: MYELOPROLIFERATIVE NEOPLASM
     Dosage: UNK
     Route: 065
     Dates: start: 201601

REACTIONS (8)
  - Pancytopenia [Unknown]
  - Bacteraemia [Unknown]
  - Concomitant disease aggravated [Unknown]
  - Acute myeloid leukaemia [Unknown]
  - Lower respiratory tract infection fungal [Unknown]
  - Portal hypertension [Unknown]
  - Diarrhoea [Unknown]
  - Systemic mastocytosis [Unknown]

NARRATIVE: CASE EVENT DATE: 201608
